FAERS Safety Report 23955670 (Version 1)
Quarter: 2024Q2

REPORT INFORMATION
  Report Type: Spontaneous
  Country: GB (occurrence: GB)
  Receive Date: 20240610
  Receipt Date: 20240610
  Transmission Date: 20240716
  Serious: Yes (Other)
  Sender: FDA-Public Use
  Company Number: None

PATIENT
  Sex: Female
  Weight: 64 kg

DRUGS (1)
  1. ZOLMITRIPTAN [Suspect]
     Active Substance: ZOLMITRIPTAN
     Indication: Migraine
     Dosage: 2.5 MG AT ONSET OF SYMPTOMS, OCCASIONALLY A SECOND TABLET AFTER 2 HOURS
     Route: 065

REACTIONS (1)
  - Arthralgia [Recovering/Resolving]
